FAERS Safety Report 7233090-1 (Version None)
Quarter: 2011Q1

REPORT INFORMATION
  Report Type: 
  Country: None (occurrence: None)
  Receive Date: 20110119
  Receipt Date: 20110107
  Transmission Date: 20110831
  Serious: Yes (Other)
  Sender: FDA-Public Use
  Company Number: DE-PFIZER INC-2011005866

PATIENT
  Sex: Male
  Weight: 62 kg

DRUGS (2)
  1. SILDENAFIL CITRATE [Suspect]
  2. BLINDED THERAPY [Suspect]
     Indication: PULMONARY ARTERIAL HYPERTENSION
     Dosage: RIOCIGUAT OR PLACEBO
     Route: 048
     Dates: start: 20101208, end: 20101222

REACTIONS (1)
  - LOSS OF CONSCIOUSNESS [None]
